FAERS Safety Report 13702495 (Version 1)
Quarter: 2017Q2

REPORT INFORMATION
  Report Type: Spontaneous
  Country: GB (occurrence: GB)
  Receive Date: 20170629
  Receipt Date: 20170629
  Transmission Date: 20170830
  Serious: Yes (Disabling)
  Sender: FDA-Public Use
  Company Number: GB-TEVA-780355ACC

PATIENT
  Age: 26 Year
  Sex: Male
  Weight: 88 kg

DRUGS (13)
  1. AMOXICILLIN. [Concomitant]
     Active Substance: AMOXICILLIN
     Dosage: 3 DOSAGE FORMS DAILY;
     Dates: start: 20170505, end: 20170506
  2. DOXYCYCLINE. [Concomitant]
     Active Substance: DOXYCYCLINE
     Dosage: TWO TO BE TAKEN ON THE FIRST DAY THEN ONE.
     Dates: start: 20170327, end: 20170509
  3. OMEPRAZOLE. [Concomitant]
     Active Substance: OMEPRAZOLE
     Dosage: 1 DOSAGE FORMS DAILY;
     Dates: start: 20160906, end: 20170602
  4. VENTOLIN [Concomitant]
     Active Substance: ALBUTEROL SULFATE
     Dosage: AS DIRECTED.
     Dates: start: 20130903, end: 20170602
  5. ERYTHROMYCIN. [Suspect]
     Active Substance: ERYTHROMYCIN
     Dates: start: 20170607
  6. FLUTICASONE. [Concomitant]
     Active Substance: FLUTICASONE
     Dosage: ONE TO TWO PUFFS EACH DAY.
     Route: 055
     Dates: start: 20151216, end: 20170602
  7. MOMETASONE [Concomitant]
     Active Substance: MOMETASONE
     Dosage: 4 DOSAGE FORMS DAILY;
     Dates: start: 20170505, end: 20170506
  8. CITALOPRAM [Concomitant]
     Active Substance: CITALOPRAM HYDROBROMIDE
     Dosage: 2 DOSAGE FORMS DAILY;
     Dates: start: 20130326, end: 20170602
  9. IBUPROFEN. [Concomitant]
     Active Substance: IBUPROFEN
     Dosage: 2 DOSAGE FORMS DAILY;
     Dates: start: 20041001, end: 20170602
  10. NAPROXEN. [Concomitant]
     Active Substance: NAPROXEN
     Dosage: 2 DOSAGE FORMS DAILY;
     Dates: start: 20170330, end: 20170512
  11. LORATADINE. [Concomitant]
     Active Substance: LORATADINE
     Dosage: 1 DOSAGE FORMS DAILY;
     Dates: start: 20061024, end: 20170602
  12. CETIRIZINE [Concomitant]
     Active Substance: CETIRIZINE HYDROCHLORIDE
     Dosage: 1 DOSAGE FORMS DAILY;
     Dates: start: 20081014, end: 20170602
  13. SALBUTAMOL [Concomitant]
     Active Substance: ALBUTEROL
     Dosage: AS DIRECTED.
     Dates: start: 20030624, end: 20170602

REACTIONS (1)
  - Abdominal symptom [Unknown]

NARRATIVE: CASE EVENT DATE: 20170607
